FAERS Safety Report 8886533 (Version 2)
Quarter: 2013Q1

REPORT INFORMATION
  Report Type: Spontaneous
  Country: US (occurrence: US)
  Receive Date: 20121105
  Receipt Date: 20130205
  Transmission Date: 20140127
  Serious: Yes (Death)
  Sender: FDA-Public Use
  Company Number: US-ELI_LILLY_AND_COMPANY-US201101005655

PATIENT
  Sex: 0
  Weight: 44.9 kg

DRUGS (16)
  1. FORTEO [Suspect]
     Indication: OSTEOPOROSIS
     Dosage: 20 UG, DAILY (1/D)
     Route: 058
     Dates: start: 2010, end: 2012
  2. NEXIUM [Concomitant]
     Dosage: 40 MG, QD
     Route: 048
  3. SYNTHROID [Concomitant]
     Dosage: 75 UG, QD
     Route: 048
  4. CALCIUM + VITAMIN D [Concomitant]
     Dosage: UNK, TID
     Route: 048
     Dates: start: 20100429
  5. ALPRAZOLAM [Concomitant]
     Dosage: 0.5 MG, QID
     Dates: start: 20090210
  6. GABAPENTIN [Concomitant]
     Dosage: 600 MG, QD
     Route: 048
     Dates: start: 20100429
  7. SPIRIVA HANDIHALER [Concomitant]
     Dosage: 18 UG, QD
     Route: 055
     Dates: start: 20090210
  8. AMLODIPINE BESYLATE [Concomitant]
     Dosage: 5 MG, QD
     Dates: start: 20090210
  9. PHENYTOIN SODIUM EXTENDED [Concomitant]
     Dosage: 100 MG, OTHER
     Dates: start: 20090210
  10. HYZAAR [Concomitant]
     Dosage: UNK, QD
     Dates: start: 20090210
  11. ALBUTEROL SULFATE [Concomitant]
     Dosage: UNK, PRN
     Route: 055
  12. VICODIN [Concomitant]
  13. ZYRTEC [Concomitant]
     Dosage: 10 MG, PRN
     Route: 048
  14. PROAIR HFA [Concomitant]
     Dosage: 108 UG, PRN
  15. BUTALBITAL W/ASPIRIN,CAFFEINE [Concomitant]
     Dosage: UNK, PRN
  16. HYDROCODONE W/PARACETAMOL [Concomitant]
     Dosage: UNK, PRN

REACTIONS (4)
  - Respiratory arrest [Fatal]
  - Nasopharyngitis [Unknown]
  - Paranasal sinus hypersecretion [Unknown]
  - Upper respiratory tract infection [Unknown]
